FAERS Safety Report 12371488 (Version 2)
Quarter: 2016Q2

REPORT INFORMATION
  Report Type: Spontaneous
  Country: IL (occurrence: IL)
  Receive Date: 20160516
  Receipt Date: 20160617
  Transmission Date: 20160815
  Serious: Yes (Hospitalization)
  Sender: FDA-Public Use
  Company Number: IL-ROCHE-757210

PATIENT
  Sex: Male

DRUGS (11)
  1. NEULASTIM [Suspect]
     Active Substance: PEGFILGRASTIM
     Indication: PROPHYLAXIS
     Route: 065
  2. ETOPOSIDE. [Concomitant]
     Active Substance: ETOPOSIDE
  3. DACARBAZINE. [Concomitant]
     Active Substance: DACARBAZINE
  4. CYCLOPHOSPHAMIDE. [Concomitant]
     Active Substance: CYCLOPHOSPHAMIDE
     Indication: B-CELL LYMPHOMA
  5. RITUXIMAB [Suspect]
     Active Substance: RITUXIMAB
     Indication: B-CELL LYMPHOMA
     Route: 065
  6. PREDNISONE. [Concomitant]
     Active Substance: PREDNISONE
     Indication: B-CELL LYMPHOMA
  7. BLEOMYCIN [Concomitant]
     Active Substance: BLEOMYCIN SULFATE
  8. ADRIAMYCIN [Concomitant]
     Active Substance: DOXORUBICIN HYDROCHLORIDE
  9. PROCARBAZINE [Concomitant]
     Active Substance: PROCARBAZINE
  10. VINBLASTINE [Concomitant]
     Active Substance: VINBLASTINE
  11. ONCOVIN [Concomitant]
     Active Substance: VINCRISTINE SULFATE
     Indication: B-CELL LYMPHOMA

REACTIONS (1)
  - Bone pain [Unknown]
